FAERS Safety Report 5381310-0 (Version None)
Quarter: 2007Q2

REPORT INFORMATION
  Report Type: 
  Country: None (occurrence: None)
  Receive Date: 20070629
  Receipt Date: 20061201
  Transmission Date: 20071010
  Serious: Yes (Hospitalization)
  Sender: FDA-Public Use
  Company Number: VISP-PR-0609S-0653

PATIENT
  Age: 48 Year
  Sex: Male
  Weight: 95.2554 kg

DRUGS (2)
  1. VISIPAQUE [Suspect]
     Indication: DRUG USE FOR UNKNOWN INDICATION
     Dosage: 180 ML, SINGLE DOSE, I.V.
     Route: 042
     Dates: start: 20060929, end: 20060929
  2. VISIPAQUE [Suspect]

REACTIONS (1)
  - HYPERSENSITIVITY [None]
